FAERS Safety Report 20595242 (Version 1)
Quarter: 2022Q1

REPORT INFORMATION
  Report Type: Spontaneous
  Country: US (occurrence: None)
  Receive Date: 20220314
  Receipt Date: 20220314
  Transmission Date: 20220423
  Serious: Yes (Hospitalization, Other)
  Sender: FDA-Public Use
  Company Number: None

PATIENT
  Age: 19 Year
  Sex: Female
  Weight: 86 kg

DRUGS (1)
  1. BLINATUMOMAB [Suspect]
     Active Substance: BLINATUMOMAB
     Indication: B precursor type acute leukaemia
     Dosage: FREQUENCY : DAILY;?
     Route: 041
     Dates: start: 20220311, end: 20220311

REACTIONS (4)
  - Headache [None]
  - Tremor [None]
  - Generalised tonic-clonic seizure [None]
  - Postictal state [None]

NARRATIVE: CASE EVENT DATE: 20220311
